FAERS Safety Report 17808944 (Version 1)
Quarter: 2020Q2

REPORT INFORMATION
  Report Type: Spontaneous
  Country: CN (occurrence: CN)
  Receive Date: 20200520
  Receipt Date: 20200520
  Transmission Date: 20200714
  Serious: Yes (Hospitalization)
  Sender: FDA-Public Use
  Company Number: CN-CELGENEUS-CHN-20200505373

PATIENT
  Age: 63 Year
  Sex: Male
  Weight: 62 kg

DRUGS (8)
  1. ABRAXANE [Suspect]
     Active Substance: PACLITAXEL
     Dosage: 172 MILLIGRAM
     Route: 041
     Dates: start: 20200501
  2. CODEINE PHOSPHATE [Concomitant]
     Active Substance: CODEINE PHOSPHATE
     Indication: NEUTROPHIL COUNT DECREASED
     Dosage: 90 MILLIGRAM
     Route: 048
     Dates: start: 20200502
  3. MEDROXYPROGESTERONE ACETATE. [Concomitant]
     Active Substance: MEDROXYPROGESTERONE ACETATE
     Indication: NEUTROPHIL COUNT DECREASED
     Dosage: .16 GRAM
     Route: 048
     Dates: start: 20200502
  4. CARBOPLATIN. [Suspect]
     Active Substance: CARBOPLATIN
     Indication: NON-SMALL CELL LUNG CANCER
     Dosage: 598.55 MILLIGRAM
     Route: 041
     Dates: start: 20200417
  5. SODIUM RABEPRAZOLE [Concomitant]
     Active Substance: RABEPRAZOLE SODIUM
     Indication: PROPHYLAXIS
     Dosage: 20 MILLIGRAM
     Route: 048
     Dates: start: 20200418
  6. AMBROXOL HYDROCHLORIDE [Concomitant]
     Active Substance: AMBROXOL HYDROCHLORIDE
     Indication: NEUTROPHIL COUNT DECREASED
     Dosage: 90 MILLIGRAM
     Route: 048
     Dates: start: 20200502, end: 20200504
  7. SERPLULIMAB. [Concomitant]
     Active Substance: SERPLULIMAB
     Indication: NON-SMALL CELL LUNG CANCER
     Dosage: 288 MILLIGRAM
     Route: 041
     Dates: start: 20200417
  8. ABRAXANE [Suspect]
     Active Substance: PACLITAXEL
     Indication: NON-SMALL CELL LUNG CANCER
     Dosage: 174 MILLIGRAM
     Route: 041
     Dates: start: 20200417, end: 20200424

REACTIONS (2)
  - White blood cell count decreased [Recovered/Resolved]
  - Neutrophil count decreased [Recovered/Resolved]

NARRATIVE: CASE EVENT DATE: 20200506
